FAERS Safety Report 21536176 (Version 1)
Quarter: 2022Q4

REPORT INFORMATION
  Report Type: Spontaneous
  Country: CN (occurrence: CN)
  Receive Date: 20221101
  Receipt Date: 20221101
  Transmission Date: 20230112
  Serious: Yes (Other)
  Sender: FDA-Public Use
  Company Number: None

PATIENT
  Age: 52 Year
  Sex: Female
  Weight: 70 kg

DRUGS (6)
  1. CYCLOPHOSPHAMIDE [Suspect]
     Active Substance: CYCLOPHOSPHAMIDE
     Indication: Breast cancer female
     Dosage: 920 MG, ONCE DAILY, DILUTED IN NS 50 ML, THIRD CHEMOTHERAPY
     Route: 042
     Dates: start: 20220819, end: 20220819
  2. CYCLOPHOSPHAMIDE [Suspect]
     Active Substance: CYCLOPHOSPHAMIDE
     Indication: Chemotherapy
  3. SODIUM CHLORIDE [Suspect]
     Active Substance: SODIUM CHLORIDE
     Indication: Medication dilution
     Dosage: 50 ML, ONCE DAILY, USED TO DILUTE 920 MG CYCLOPHOSPHAMIDE, THIRD CHEMOTHERAPY
     Route: 042
     Dates: start: 20220819, end: 20220819
  4. SODIUM CHLORIDE [Suspect]
     Active Substance: SODIUM CHLORIDE
     Dosage: 100 ML, ONCE DAILY, USED TO DILUTE AIDASHENG 140 MG, THIRD CHEMOTHERAPY
     Route: 041
     Dates: start: 20220819, end: 20220819
  5. EPIRUBICIN HYDROCHLORIDE [Suspect]
     Active Substance: EPIRUBICIN HYDROCHLORIDE
     Indication: Breast cancer female
     Dosage: 140 MG, ONCE DAILY, DILUTED IN NS 100 ML, THIRD CHEMOTHERAPY
     Route: 041
     Dates: start: 20220819, end: 20220819
  6. EPIRUBICIN HYDROCHLORIDE [Suspect]
     Active Substance: EPIRUBICIN HYDROCHLORIDE
     Indication: Chemotherapy

REACTIONS (2)
  - White blood cell count decreased [Recovered/Resolved]
  - Agranulocytosis [Recovered/Resolved]

NARRATIVE: CASE EVENT DATE: 20220902
